FAERS Safety Report 4699983-4 (Version None)
Quarter: 2005Q2

REPORT INFORMATION
  Report Type: 
  Country: None (occurrence: None)
  Receive Date: 20050623
  Receipt Date: 20050609
  Transmission Date: 20051028
  Serious: Yes (Hospitalization)
  Sender: FDA-Public Use
  Company Number: 198774

PATIENT
  Age: 48 Year
  Sex: Male
  Weight: 106.1417 kg

DRUGS (3)
  1. AVONEX [Suspect]
     Indication: MULTIPLE SCLEROSIS
     Dosage: 30 UG;QW;IM
     Route: 030
     Dates: start: 20020301, end: 20030901
  2. AVONEX [Suspect]
     Indication: MULTIPLE SCLEROSIS
     Dosage: 30 UG;QW;IM
     Route: 030
     Dates: start: 20030901
  3. AVONEX [Suspect]
     Indication: MULTIPLE SCLEROSIS
     Dosage: QW;IM
     Route: 030

REACTIONS (6)
  - ACCIDENT [None]
  - ANKLE FRACTURE [None]
  - FOOT AMPUTATION [None]
  - INFLUENZA [None]
  - POST PROCEDURAL DISCHARGE [None]
  - POST PROCEDURAL PAIN [None]
